FAERS Safety Report 10221428 (Version 1)
Quarter: 2014Q1

REPORT INFORMATION
  Report Type: Spontaneous
  Country: US (occurrence: None)
  Receive Date: 20140306
  Receipt Date: 20140306
  Transmission Date: 20141002
  Serious: Yes (Hospitalization)
  Sender: FDA-Public Use
  Company Number: 163-21880-13101349

PATIENT
  Age: 73 Year
  Sex: Male
  Weight: 66.23 kg

DRUGS (11)
  1. REVLIMID (LENALIDOMIDE) (15 MILLIGRAM, CAPSULES) [Suspect]
     Indication: PLASMA CELL MYELOMA
     Dosage: 15 MG, 14 IN 14 D, PO
     Route: 048
     Dates: start: 20120107
  2. DEXAMETHASONE (DEXAMETHASONE) (UNKNOWN) [Concomitant]
  3. ZOMETA (ZOLEDRONIC ACID) (UNKNOWN) [Concomitant]
  4. DOXYCYCLINE MONOHYDRATE (DOXYCYCLINE MONOHYDRATE) (UNKNOWN) [Concomitant]
  5. ONDANSETRON HCL (ONDANSETRON HYDROCHLORIDE) (UNKNOWN) [Concomitant]
  6. VENTOLIN HFA (SALBUTAMOL SULFATE) (UNKNOWN) [Concomitant]
  7. ADVAIR DISKUS (SERETIDE MITE) (UNKNOWN) [Concomitant]
  8. LOVAZA (OMEGA-3 MARINE TRIGLYCERIDES) (CAPSULES) [Concomitant]
  9. IBUPROFEN (IBUPROFEN) (CAPSULES) [Concomitant]
  10. LOSARTAN POTASSIUM (LOSARTAN POTASSIUM) (UNKNOWN) [Concomitant]
  11. GLUCOSAMINE-CHONDROITIN (GLUCOSAMINE W/CHONDROITIN SULFATE) (UNKNOWN) [Concomitant]

REACTIONS (1)
  - Pyrexia [None]
